FAERS Safety Report 10186235 (Version 4)
Quarter: 2014Q2

REPORT INFORMATION
  Report Type: Spontaneous
  Country: US (occurrence: US)
  Receive Date: 20140521
  Receipt Date: 20140606
  Transmission Date: 20141212
  Serious: Yes (Disabling, Other)
  Sender: FDA-Public Use
  Company Number: US-ABBVIE-12P-163-0899037-00

PATIENT
  Sex: Male
  Weight: 79.45 kg

DRUGS (3)
  1. TRICOR TABLETS 145MG [Suspect]
     Indication: BLOOD TRIGLYCERIDES INCREASED
     Dates: start: 2007, end: 201111
  2. ZOCOR [Suspect]
     Indication: PRODUCT USED FOR UNKNOWN INDICATION
     Dates: end: 201111
  3. LISINOPRIL [Concomitant]
     Indication: PRODUCT USED FOR UNKNOWN INDICATION

REACTIONS (11)
  - Prostate cancer recurrent [Recovered/Resolved]
  - Prostatic specific antigen increased [Recovered/Resolved]
  - Gait disturbance [Not Recovered/Not Resolved]
  - Myalgia [Not Recovered/Not Resolved]
  - Muscular weakness [Not Recovered/Not Resolved]
  - Pain in extremity [Unknown]
  - Balance disorder [Not Recovered/Not Resolved]
  - Muscle spasms [Not Recovered/Not Resolved]
  - Back pain [Recovered/Resolved]
  - Paraesthesia [Unknown]
  - Nerve injury [Not Recovered/Not Resolved]
